FAERS Safety Report 21945206 (Version 1)
Quarter: 2023Q1

REPORT INFORMATION
  Report Type: Spontaneous
  Country: HR (occurrence: HR)
  Receive Date: 20230202
  Receipt Date: 20230202
  Transmission Date: 20230418
  Serious: Yes (Hospitalization)
  Sender: FDA-Public Use
  Company Number: None

PATIENT
  Age: 15 Year
  Sex: Female
  Weight: 65 kg

DRUGS (1)
  1. GADOBUTROL [Suspect]
     Active Substance: GADOBUTROL
     Indication: Imaging procedure
     Dosage: 6 ML, ONCE
     Route: 042
     Dates: start: 20230113, end: 20230113

REACTIONS (9)
  - Seizure [Recovered/Resolved]
  - Syncope [Recovered/Resolved]
  - Nasal oedema [Recovered/Resolved]
  - Eyelid oedema [Recovered/Resolved]
  - Throat irritation [Recovered/Resolved]
  - Lip oedema [Recovered/Resolved]
  - Cough [Recovered/Resolved]
  - Head discomfort [Recovered/Resolved]
  - Rash macular [Recovered/Resolved]

NARRATIVE: CASE EVENT DATE: 20230113
